FAERS Safety Report 20430610 (Version 1)
Quarter: 2022Q1

REPORT INFORMATION
  Report Type: Spontaneous
  Country: PL (occurrence: PL)
  Receive Date: 20220204
  Receipt Date: 20220204
  Transmission Date: 20220423
  Serious: Yes (Hospitalization)
  Sender: FDA-Public Use
  Company Number: PL-MENARINI-PL-MEN-081166

PATIENT
  Age: 82 Year
  Sex: Female
  Weight: 72 kg

DRUGS (17)
  1. PERINDOPRIL [Suspect]
     Active Substance: PERINDOPRIL
     Indication: Cardiac disorder
     Dosage: 2.5 MILLIGRAM, ONCE A DAY
     Route: 048
     Dates: start: 20211223
  2. RIVAROXABAN [Suspect]
     Active Substance: RIVAROXABAN
     Indication: Cardiac disorder
     Dosage: 20 MILLIGRAM, ONCE A DAY
     Route: 048
     Dates: start: 20211203, end: 202112
  3. AMIODARONE HYDROCHLORIDE [Suspect]
     Active Substance: AMIODARONE HYDROCHLORIDE
     Indication: Cardiac disorder
     Dosage: 200 MILLIGRAM, ONCE A DAY
     Route: 048
     Dates: start: 20211203, end: 202112
  4. EZETIMIBE\ROSUVASTATIN CALCIUM [Suspect]
     Active Substance: EZETIMIBE\ROSUVASTATIN CALCIUM
     Indication: Cardiac disorder
     Dosage: UNK (10 MG/10 MG (10MG/10MG, 1 IN 1 D))
     Route: 048
     Dates: start: 20211203, end: 20211223
  5. NEBIVOLOL [Suspect]
     Active Substance: NEBIVOLOL
     Indication: Cardiac disorder
     Dosage: 1.25 MILLIGRAM, ONCE A DAY
     Route: 048
     Dates: start: 20211203, end: 202112
  6. TORSEMIDE [Suspect]
     Active Substance: TORSEMIDE
     Indication: Cardiac disorder
     Dosage: 2.5 MILLIGRAM, TWO TIMES A DAY
     Route: 048
     Dates: start: 20211203, end: 20211223
  7. LERCANIDIPINE HYDROCHLORIDE [Concomitant]
     Active Substance: LERCANIDIPINE HYDROCHLORIDE
     Indication: Cardiac disorder
     Dosage: 10 MILLIGRAM, ONCE A DAY
     Route: 048
     Dates: end: 20211202
  8. RIVASTIGMINE TARTRATE [Concomitant]
     Active Substance: RIVASTIGMINE TARTRATE
     Indication: Stupor
     Dosage: UNK
     Route: 065
  9. RIVASTIGMINE TARTRATE [Concomitant]
     Active Substance: RIVASTIGMINE TARTRATE
     Indication: Dementia Alzheimer^s type
     Dosage: 6 MILLIGRAM, ONCE A DAY
     Route: 048
  10. GABAPENTIN [Concomitant]
     Active Substance: GABAPENTIN
     Indication: Nervous system disorder
     Dosage: 800 MILLIGRAM, ONCE A DAY
     Route: 048
  11. INSULIN HUMAN [Concomitant]
     Active Substance: INSULIN HUMAN
     Indication: Diabetes mellitus
     Dosage: UNK
     Route: 058
  12. SOTALOL HYDROCHLORIDE [Concomitant]
     Active Substance: SOTALOL HYDROCHLORIDE
     Indication: Cardiac disorder
     Dosage: 160 MILLIGRAM, ONCE A DAY
     Route: 048
     Dates: end: 20211202
  13. DULOXETINE HYDROCHLORIDE [Concomitant]
     Active Substance: DULOXETINE HYDROCHLORIDE
     Indication: Nervous system disorder
     Dosage: 60 MILLIGRAM, ONCE A DAY
     Route: 048
     Dates: start: 201907
  14. INSULIN HUMAN [Concomitant]
     Active Substance: INSULIN HUMAN
     Indication: Diabetes mellitus
     Dosage: UNK
     Route: 058
  15. BENSERAZIDE HYDROCHLORIDE\LEVODOPA [Concomitant]
     Active Substance: BENSERAZIDE HYDROCHLORIDE\LEVODOPA
     Indication: Parkinson^s disease
     Dosage: UNK (300 MG/75 MG (100MG/25MG, 3 IN 1 D))
     Route: 048
  16. BETAHISTINE HYDROCHLORIDE [Concomitant]
     Active Substance: BETAHISTINE HYDROCHLORIDE
     Indication: Syncope
     Dosage: 16 MILLIGRAM, ONCE A DAY
     Route: 048
     Dates: start: 201907
  17. MAGNESIUM CITRATE;POTASSIUM [Concomitant]
     Indication: Nutritional supplementation
     Dosage: 1000 MILLIGRAM, ONCE A DAY
     Route: 048

REACTIONS (14)
  - Eating disorder [Unknown]
  - Dizziness [Unknown]
  - Hypoacusis [Unknown]
  - Stiff tongue [Unknown]
  - Asthenia [Unknown]
  - Pain in extremity [Unknown]
  - Visual impairment [Unknown]
  - Malaise [Unknown]
  - Hypoaesthesia [Unknown]
  - Tremor [Unknown]
  - Oedema peripheral [Unknown]
  - Somnolence [Unknown]
  - Adverse reaction [Unknown]
  - Product use in unapproved indication [Recovered/Resolved]

NARRATIVE: CASE EVENT DATE: 20211203
